FAERS Safety Report 5936724-4 (Version None)
Quarter: 2008Q4

REPORT INFORMATION
  Report Type: 
  Country: None (occurrence: None)
  Receive Date: 20081021
  Receipt Date: 20071130
  Transmission Date: 20090506
  Serious: Yes (Other)
  Sender: FDA-Public Use
  Company Number: HQWYE170324JUL03

PATIENT
  Age: 74 Year
  Sex: Female

DRUGS (5)
  1. PREMARIN [Suspect]
     Dosage: ORAL
     Route: 048
     Dates: start: 19850101, end: 20010401
  2. CYCRIN [Suspect]
     Dosage: ORAL
     Route: 048
     Dates: start: 19850101, end: 20010401
  3. MEDROXYPROGESTERONE ACETATE [Suspect]
  4. PREMPRO [Suspect]
  5. PROVERA [Suspect]

REACTIONS (1)
  - DEEP VEIN THROMBOSIS [None]
